FAERS Safety Report 10563224 (Version 1)
Quarter: 2014Q4

REPORT INFORMATION
  Report Type: Spontaneous
  Country: US (occurrence: None)
  Receive Date: 20141103
  Receipt Date: 20141103
  Transmission Date: 20150529
  Serious: Yes (Disabling)
  Sender: FDA-Public Use
  Company Number: None

PATIENT
  Age: 46 Year
  Sex: Female
  Weight: 51.71 kg

DRUGS (1)
  1. CIPROFLOXACIN. [Suspect]
     Active Substance: CIPROFLOXACIN
     Indication: SINUSITIS
     Dosage: 1 PILL
     Route: 048
     Dates: start: 20070223, end: 20070304

REACTIONS (29)
  - Asthenia [None]
  - Rhabdomyolysis [None]
  - Depression [None]
  - Photosensitivity reaction [None]
  - Blindness [None]
  - Arthralgia [None]
  - Tremor [None]
  - Panic attack [None]
  - Vitreous floaters [None]
  - Vision blurred [None]
  - Tendon pain [None]
  - Hypoglycaemia [None]
  - Anxiety [None]
  - Amnesia [None]
  - Deafness [None]
  - Hypothyroidism [None]
  - Rotator cuff syndrome [None]
  - Alopecia [None]
  - Heart rate irregular [None]
  - Muscle atrophy [None]
  - Balance disorder [None]
  - Depersonalisation [None]
  - Feeling abnormal [None]
  - Temperature intolerance [None]
  - Irritable bowel syndrome [None]
  - Diarrhoea [None]
  - Posterior reversible encephalopathy syndrome [None]
  - Intervertebral disc degeneration [None]
  - Dyspnoea [None]

NARRATIVE: CASE EVENT DATE: 20070223
